FAERS Safety Report 6637375-9 (Version None)
Quarter: 2010Q1

REPORT INFORMATION
  Report Type: 
  Country: None (occurrence: None)
  Receive Date: 20100311
  Receipt Date: 20100301
  Transmission Date: 20100710
  Serious: Yes (Hospitalization)
  Sender: FDA-Public Use
  Company Number: 1000012350

PATIENT

DRUGS (3)
  1. CITALOPRAM HYDROBROMIDE [Suspect]
     Dosage: (0.2 GM)
  2. DISOPYRAMIDE [Suspect]
     Dosage: (3 GM)
  3. LITHIUM [Suspect]
     Dosage: (7.5 GM)

REACTIONS (4)
  - CARDIAC ARREST [None]
  - DRUG TOXICITY [None]
  - HYPOKINESIA [None]
  - SHOCK [None]
